FAERS Safety Report 5654800-0 (Version None)
Quarter: 2008Q1

REPORT INFORMATION
  Report Type: 
  Country: None (occurrence: None)
  Receive Date: 20080307
  Receipt Date: 20070720
  Transmission Date: 20080703
  Serious: No
  Sender: FDA-Public Use
  Company Number: A0665404A

PATIENT
  Age: 61 Year
  Sex: Female

DRUGS (4)
  1. REQUIP [Suspect]
     Indication: RESTLESS LEGS SYNDROME
     Dosage: .5MG VARIABLE DOSE
     Route: 048
     Dates: start: 20050101
  2. ZETIA [Concomitant]
  3. DIOVAN [Concomitant]
  4. ATIVAN [Concomitant]

REACTIONS (10)
  - ARTHRALGIA [None]
  - BREAST ENLARGEMENT [None]
  - CHEST PAIN [None]
  - DEPRESSION [None]
  - DRUG INEFFECTIVE [None]
  - ENURESIS [None]
  - FRUSTRATION [None]
  - IRRITABILITY [None]
  - PAIN IN EXTREMITY [None]
  - RESTLESS LEGS SYNDROME [None]
